FAERS Safety Report 8986184 (Version 1)
Quarter: 2012Q4

REPORT INFORMATION
  Report Type: Spontaneous
  Country: US (occurrence: None)
  Receive Date: 20121217
  Receipt Date: 20121217
  Transmission Date: 20130627
  Serious: Yes (Other)
  Sender: FDA-Public Use
  Company Number: 7121601

PATIENT
  Sex: Female
  Weight: 50 kg

DRUGS (1)
  1. FOLLITROPIN ALFA [Suspect]

REACTIONS (1)
  - Ovarian hyperstimulation syndrome [None]
